FAERS Safety Report 12217260 (Version 2)
Quarter: 2016Q2

REPORT INFORMATION
  Report Type: Spontaneous
  Country: JP (occurrence: JP)
  Receive Date: 20160329
  Receipt Date: 20160413
  Transmission Date: 20160815
  Serious: Yes (Life-Threatening, Other)
  Sender: FDA-Public Use
  Company Number: JP-009507513-1512JPN013147

PATIENT
  Age: 73 Year
  Sex: Female
  Weight: 55 kg

DRUGS (7)
  1. ISOTONIC SODIUM CHLORIDE SOLUTION KIT H [Concomitant]
     Indication: MEDICATION DILUTION
     Dosage: 20 ML, QD
     Route: 051
     Dates: start: 20151224, end: 20151224
  2. PROPOFOL. [Concomitant]
     Active Substance: PROPOFOL
     Indication: INDUCTION AND MAINTENANCE OF ANAESTHESIA
     Dosage: 70 MG, QD
     Route: 042
     Dates: start: 20151224, end: 20151224
  3. ULTIVA [Concomitant]
     Active Substance: REMIFENTANIL HYDROCHLORIDE
     Dosage: 0.1 MCG/KG/MIN
     Route: 041
     Dates: start: 20151224, end: 20151224
  4. ESLAX [Suspect]
     Active Substance: ROCURONIUM BROMIDE
     Indication: NEUROMUSCULAR BLOCKING THERAPY
     Dosage: 32.5MG WAS ADMINISTERED AFTER 2.5MG ADMINISTERED
     Route: 042
     Dates: start: 20151224, end: 20151224
  5. ULTIVA [Concomitant]
     Active Substance: REMIFENTANIL HYDROCHLORIDE
     Indication: GENERAL ANAESTHESIA
     Dosage: 0.04 MCG/KG/MIN-0.5 MCG/KG/MIN
     Route: 041
     Dates: start: 20151224, end: 20151224
  6. ANAPEINE [Concomitant]
     Active Substance: ROPIVACAINE HYDROCHLORIDE
     Indication: NERVE BLOCK
     Dosage: 75 MG, QD. DIVIDED DOSE FREQUENCY UNKNOWN
     Route: 042
     Dates: start: 20151224, end: 20151224
  7. XYLOCAINE [Concomitant]
     Active Substance: LIDOCAINE HYDROCHLORIDE
     Indication: LOCAL ANAESTHESIA
     Dosage: ABOUT 6ML. DIVIDED DOSE FREQUENCY UNKNOWN
     Route: 051

REACTIONS (4)
  - Blood potassium decreased [Recovered/Resolved]
  - Hypoventilation [Recovered/Resolved]
  - Anaphylactic shock [Recovered/Resolved]
  - Cough [Recovered/Resolved]

NARRATIVE: CASE EVENT DATE: 20151224
